FAERS Safety Report 20893735 (Version 1)
Quarter: 2022Q2

REPORT INFORMATION
  Report Type: Spontaneous
  Country: US (occurrence: US)
  Receive Date: 20220531
  Receipt Date: 20220531
  Transmission Date: 20220721
  Serious: Yes (Hospitalization)
  Sender: FDA-Public Use
  Company Number: US-Blueprint Medicines Corporation-SP-US-2022-001645

PATIENT
  Sex: Female

DRUGS (1)
  1. AYVAKIT [Suspect]
     Active Substance: AVAPRITINIB
     Indication: Chronic myeloid leukaemia
     Route: 048

REACTIONS (3)
  - Sepsis [Not Recovered/Not Resolved]
  - Aphasia [Not Recovered/Not Resolved]
  - Off label use [Unknown]
